FAERS Safety Report 25586506 (Version 1)
Quarter: 2025Q3

REPORT INFORMATION
  Report Type: Spontaneous
  Country: US (occurrence: US)
  Receive Date: 20250721
  Receipt Date: 20250721
  Transmission Date: 20251020
  Serious: No
  Sender: PFIZER
  Company Number: US-PFIZER INC-202500145845

PATIENT
  Age: 47 Year
  Sex: Female

DRUGS (3)
  1. CIBINQO [Suspect]
     Active Substance: ABROCITINIB
     Indication: Eczema
     Dosage: 200 MG, 1X/DAY
  2. CIBINQO [Suspect]
     Active Substance: ABROCITINIB
     Indication: Hand dermatitis
  3. CIBINQO [Suspect]
     Active Substance: ABROCITINIB
     Indication: Skin exfoliation

REACTIONS (3)
  - Quality of life decreased [Unknown]
  - Condition aggravated [Unknown]
  - Insomnia [Unknown]
